FAERS Safety Report 8786520 (Version 2)
Quarter: 2013Q4

REPORT INFORMATION
  Report Type: Spontaneous
  Country: US (occurrence: US)
  Receive Date: 20120914
  Receipt Date: 20131031
  Transmission Date: 20140711
  Serious: Yes (Hospitalization)
  Sender: FDA-Public Use
  Company Number: US-009507513-1209USA004355

PATIENT
  Sex: Female

DRUGS (3)
  1. MIRALAX [Suspect]
     Indication: FAECES HARD
  2. CRESTOR [Suspect]
     Indication: BLOOD CHOLESTEROL
  3. TRILIPIX [Suspect]
     Indication: BLOOD CHOLESTEROL

REACTIONS (2)
  - Dehydration [Unknown]
  - Muscle spasms [Not Recovered/Not Resolved]
